FAERS Safety Report 20545385 (Version 1)
Quarter: 2022Q1

REPORT INFORMATION
  Report Type: Other
  Country: DE (occurrence: DE)
  Receive Date: 20220303
  Receipt Date: 20220303
  Transmission Date: 20220423
  Serious: Yes (Other)
  Sender: FDA-Public Use
  Company Number: DE-MACLEODS PHARMA UK LTD-MAC2022034607

PATIENT

DRUGS (2)
  1. ESCITALOPRAM [Suspect]
     Active Substance: ESCITALOPRAM OXALATE
     Indication: Product used for unknown indication
     Dosage: 10 MILLIGRAM, QD; EXPOSED IN 1ST TRIMESTER FROM 0 TO 40.1 GESTATION WEEK
     Route: 064
     Dates: start: 20201001, end: 20210709
  2. Femibion [Concomitant]
     Indication: Product used for unknown indication
     Dosage: UNK; EXPOSED IN 1ST TRIMISTER FROM 0 TO 36 GESTATION WEEKS
     Route: 064

REACTIONS (2)
  - Small for dates baby [Unknown]
  - Foetal exposure during pregnancy [Unknown]
